FAERS Safety Report 17045850 (Version 2)
Quarter: 2019Q4

REPORT INFORMATION
  Report Type: Spontaneous
  Country: JP (occurrence: JP)
  Receive Date: 20191118
  Receipt Date: 20191125
  Transmission Date: 20200122
  Serious: Yes (Hospitalization)
  Sender: FDA-Public Use
  Company Number: JP-009507513-1911JPN001375J

PATIENT
  Age: 56 Year
  Sex: Male

DRUGS (1)
  1. MENESIT TABLETS - 100 [Suspect]
     Active Substance: CARBIDOPA\LEVODOPA
     Dosage: QID (100MG, 50MG, 50MG, 50MG)
     Route: 048

REACTIONS (3)
  - Adverse event [Unknown]
  - Blood pressure decreased [Unknown]
  - Product use issue [Unknown]
